FAERS Safety Report 8548141-1 (Version None)
Quarter: 2012Q3

REPORT INFORMATION
  Report Type: 
  Country: None (occurrence: None)
  Receive Date: 20120730
  Receipt Date: 20120718
  Transmission Date: 20120928
  Serious: Yes (Life-Threatening, Hospitalization, Disabling)
  Sender: FDA-Public Use
  Company Number: US-BIOGENIDEC-2012BI026222

PATIENT
  Age: 63 Year
  Sex: Female

DRUGS (18)
  1. DIAZEPAM [Concomitant]
  2. ARTIFICIAL TEARS [Concomitant]
     Route: 047
  3. VITAMIN D [Concomitant]
     Route: 048
  4. CALCIUM CARBONATE [Concomitant]
     Route: 048
  5. METRONIDAZOLE [Concomitant]
     Route: 061
  6. CHLORHEXIDINE GLUCONATE [Concomitant]
  7. MULTI-VITAMINS [Concomitant]
     Route: 048
  8. DEXTROMETHORPHAN-QUINIDINE [Concomitant]
     Route: 048
  9. COQ10 [Concomitant]
     Route: 048
  10. FISH OIL [Concomitant]
     Route: 048
  11. ERYTHROMYCIN [Concomitant]
     Route: 047
  12. OLMESARTAN MEDOXOMIL [Concomitant]
     Route: 048
  13. ESTRADIOL [Concomitant]
     Route: 062
  14. TYSABRI [Suspect]
     Indication: MULTIPLE SCLEROSIS
     Route: 042
     Dates: start: 20080205
  15. IBUPROFEN [Concomitant]
     Route: 048
  16. CLONIDINE [Concomitant]
     Route: 048
  17. COLACE [Concomitant]
     Route: 048
  18. PHENAZOPYRIDINE HCL TAB [Concomitant]
     Route: 048

REACTIONS (1)
  - CEREBROVASCULAR ACCIDENT [None]
